FAERS Safety Report 7246467-5 (Version None)
Quarter: 2011Q1

REPORT INFORMATION
  Report Type: 
  Country: None (occurrence: None)
  Receive Date: 20110126
  Receipt Date: 20110117
  Transmission Date: 20110831
  Serious: Yes (Other)
  Sender: FDA-Public Use
  Company Number: AU-GENENTECH-310509

PATIENT
  Age: 55 Year
  Sex: Male

DRUGS (2)
  1. MABTHERA [Suspect]
     Indication: LYMPHOMA
     Dosage: UNK
     Route: 042
  2. MABTHERA [Suspect]
     Dosage: UNK
     Route: 042

REACTIONS (3)
  - HYPOTENSION [None]
  - VOMITING [None]
  - URINARY INCONTINENCE [None]
